FAERS Safety Report 19977921 (Version 1)
Quarter: 2021Q4

REPORT INFORMATION
  Report Type: Spontaneous
  Country: US (occurrence: US)
  Receive Date: 20211020
  Receipt Date: 20211020
  Transmission Date: 20220303
  Serious: Yes (Other)
  Sender: FDA-Public Use
  Company Number: US-KYOWAKIRIN-2021BKK017321

PATIENT

DRUGS (2)
  1. NOURIANZ [Suspect]
     Active Substance: ISTRADEFYLLINE
     Indication: Parkinson^s disease
     Dosage: 1/2 TABLET, EVERY DAY
     Route: 048
     Dates: start: 20210709, end: 20210723
  2. NOURIANZ [Suspect]
     Active Substance: ISTRADEFYLLINE
     Dosage: ONE FULL TABLET, EVERYDAY
     Route: 048
     Dates: start: 20210724, end: 2021

REACTIONS (3)
  - Loss of consciousness [Unknown]
  - Dizziness [Unknown]
  - Wrong technique in product usage process [Recovered/Resolved]

NARRATIVE: CASE EVENT DATE: 20210101
